FAERS Safety Report 5898192-0 (Version None)
Quarter: 2008Q3

REPORT INFORMATION
  Report Type: 
  Country: None (occurrence: None)
  Receive Date: 20080925
  Receipt Date: 20080915
  Transmission Date: 20090109
  Serious: Yes (Other)
  Sender: FDA-Public Use
  Company Number: US-ELI_LILLY_AND_COMPANY-US200809003240

PATIENT
  Sex: Male

DRUGS (1)
  1. GEMZAR [Suspect]
     Indication: PANCREATIC CARCINOMA
     Dates: start: 20080703

REACTIONS (9)
  - ASTHENIA [None]
  - CARDIOVERSION [None]
  - CHILLS [None]
  - HEART RATE INCREASED [None]
  - INFECTION [None]
  - MALAISE [None]
  - NAUSEA [None]
  - PYREXIA [None]
  - VOMITING [None]
